FAERS Safety Report 8214864-7 (Version None)
Quarter: 2012Q1

REPORT INFORMATION
  Report Type: 
  Country: None (occurrence: None)
  Receive Date: 20120316
  Receipt Date: 20120307
  Transmission Date: 20120608
  Serious: No
  Sender: FDA-Public Use
  Company Number: US-JNJFOC-20120305803

PATIENT
  Sex: Female
  Weight: 83.92 kg

DRUGS (1)
  1. FENTANYL [Suspect]
     Indication: PAIN
     Route: 062
     Dates: start: 20101201

REACTIONS (2)
  - PRODUCT QUALITY ISSUE [None]
  - WRONG TECHNIQUE IN DRUG USAGE PROCESS [None]
